FAERS Safety Report 19435789 (Version 1)
Quarter: 2021Q2

REPORT INFORMATION
  Report Type: Report from Study
  Country: US (occurrence: US)
  Receive Date: 20210618
  Receipt Date: 20210618
  Transmission Date: 20210717
  Serious: Yes (Other)
  Sender: FDA-Public Use
  Company Number: US-HBP-2021US022199

PATIENT
  Sex: Female

DRUGS (1)
  1. VALCHLOR [Suspect]
     Active Substance: MECHLORETHAMINE
     Indication: CUTANEOUS T-CELL LYMPHOMA
     Dosage: THIN FILM, SINGLE
     Route: 061

REACTIONS (6)
  - Suspected product quality issue [Unknown]
  - Skin irritation [Unknown]
  - Application site scab [Unknown]
  - Palpitations [Unknown]
  - Malignant neoplasm progression [Unknown]
  - Therapeutic product effect decreased [Not Recovered/Not Resolved]
